FAERS Safety Report 7997377-7 (Version None)
Quarter: 2011Q4

REPORT INFORMATION
  Report Type: 
  Country: None (occurrence: None)
  Receive Date: 20111221
  Receipt Date: 20111212
  Transmission Date: 20120403
  Serious: Yes (Hospitalization)
  Sender: FDA-Public Use
  Company Number: US-BAYER-2011-026833

PATIENT
  Age: 25 Year
  Sex: Female
  Weight: 149.66 kg

DRUGS (2)
  1. YASMIN [Suspect]
     Dosage: UNK
     Route: 048
     Dates: start: 20050101, end: 20050401
  2. ACETAMINOPHEN [Concomitant]
     Indication: HEADACHE
     Dosage: 500 MG, UNK

REACTIONS (5)
  - PAIN [None]
  - CHOLECYSTITIS [None]
  - MENTAL DISORDER [None]
  - INJURY [None]
  - CHOLELITHIASIS [None]
